FAERS Safety Report 24219227 (Version 1)
Quarter: 2024Q3

REPORT INFORMATION
  Report Type: Report from Study
  Country: US (occurrence: None)
  Receive Date: 20240816
  Receipt Date: 20240816
  Transmission Date: 20241017
  Serious: Yes (Other)
  Sender: ASTRAZENECA
  Company Number: 2024A184307

PATIENT
  Sex: Female

DRUGS (10)
  1. LYNPARZA [Suspect]
     Active Substance: OLAPARIB
     Indication: Ovarian cancer
     Route: 048
     Dates: start: 20230801
  2. MAGNESIUM [Concomitant]
     Active Substance: MAGNESIUM
  3. PRILOSEC [Concomitant]
     Active Substance: OMEPRAZOLE MAGNESIUM
  4. IBUPROFEN [Concomitant]
     Active Substance: IBUPROFEN
  5. COMPAZINE [Concomitant]
     Active Substance: PROCHLORPERAZINE MALEATE
  6. TYLENOL [Concomitant]
     Active Substance: ACETAMINOPHEN
  7. XARELTO [Concomitant]
     Active Substance: RIVAROXABAN
  8. COLACE [Concomitant]
     Active Substance: DOCUSATE SODIUM
  9. VOLTAREN ARTHRITIS 1% GEL [Concomitant]
     Indication: Arthritis
  10. MELATONIN [Concomitant]
     Active Substance: MELATONIN
     Indication: Arthritis

REACTIONS (2)
  - Renal failure [Not Recovered/Not Resolved]
  - Liver function test abnormal [Not Recovered/Not Resolved]
